FAERS Safety Report 5331449-0 (Version None)
Quarter: 2007Q2

REPORT INFORMATION
  Report Type: 
  Country: None (occurrence: None)
  Receive Date: 20070522
  Receipt Date: 20070510
  Transmission Date: 20071010
  Serious: Yes (Other)
  Sender: FDA-Public Use
  Company Number: US-PFIZER INC-2007038587

PATIENT

DRUGS (1)
  1. GEODON [Suspect]

REACTIONS (2)
  - DELUSION [None]
  - HALLUCINATION [None]
